FAERS Safety Report 5893804-X (Version None)
Quarter: 2008Q3

REPORT INFORMATION
  Report Type: 
  Country: None (occurrence: None)
  Receive Date: 20080923
  Receipt Date: 20080911
  Transmission Date: 20090109
  Serious: Yes (Other)
  Sender: FDA-Public Use
  Company Number: DE-ELI_LILLY_AND_COMPANY-DE200809002721

PATIENT
  Age: 68 Year
  Sex: Male

DRUGS (3)
  1. BYETTA [Suspect]
     Indication: TYPE 2 DIABETES MELLITUS
     Dosage: UNK, UNKNOWN
     Route: 058
     Dates: start: 20080430, end: 20080630
  2. BYETTA [Suspect]
     Dosage: 10 UG, UNKNOWN
     Route: 058
     Dates: start: 20080701
  3. METFORMIN HCL [Concomitant]
     Dosage: UNK, UNKNOWN
     Route: 065

REACTIONS (2)
  - ARRHYTHMIA [None]
  - BLOOD GLUCOSE INCREASED [None]
